FAERS Safety Report 24604297 (Version 1)
Quarter: 2024Q4

REPORT INFORMATION
  Report Type: Spontaneous
  Country: US (occurrence: None)
  Receive Date: 20241110
  Receipt Date: 20241110
  Transmission Date: 20250114
  Serious: Yes (Other)
  Sender: Public
  Company Number: None

PATIENT
  Age: 43 Year
  Sex: Male
  Weight: 71.21 kg

DRUGS (1)
  1. QUETIAPINE [Suspect]
     Active Substance: QUETIAPINE
     Dosage: 2 TOT DAILY ORAL ?
     Route: 048

REACTIONS (2)
  - Insomnia [None]
  - Heart rate increased [None]

NARRATIVE: CASE EVENT DATE: 20241029
